FAERS Safety Report 4520683-5 (Version None)
Quarter: 2004Q4

REPORT INFORMATION
  Report Type: 
  Country: None (occurrence: None)
  Receive Date: 20041203
  Receipt Date: 20041115
  Transmission Date: 20050328
  Serious: Yes (Life-Threatening)
  Sender: FDA-Public Use
  Company Number: 9358

PATIENT
  Age: 54 Year
  Sex: Female

DRUGS (5)
  1. PACLITAXEL (BATCH # P016854) [Suspect]
     Indication: BREAST CANCER
     Dosage: 270 MG, IV
     Route: 042
     Dates: start: 20041104, end: 20041104
  2. GRANISETRON [Concomitant]
  3. DEXAMETHASONE [Concomitant]
  4. CETIRIZINE HCL [Concomitant]
  5. RANITIDINE [Concomitant]

REACTIONS (3)
  - COUGH [None]
  - DYSPNOEA [None]
  - THROAT TIGHTNESS [None]
